FAERS Safety Report 6006422-X (Version None)
Quarter: 2008Q4

REPORT INFORMATION
  Report Type: 
  Country: None (occurrence: None)
  Receive Date: 20081215
  Receipt Date: 20081203
  Transmission Date: 20090506
  Serious: Yes (Hospitalization)
  Sender: FDA-Public Use
  Company Number: 2008AL012304

PATIENT
  Age: 47 Year
  Sex: Female

DRUGS (3)
  1. DICLOFENAC SODIUM [Suspect]
     Dosage: PO
     Route: 048
     Dates: end: 20081121
  2. AMITRIPTYLINE [Concomitant]
  3. OMEPRAZOLE [Concomitant]

REACTIONS (3)
  - ACUTE CORONARY SYNDROME [None]
  - HAEMATEMESIS [None]
  - UPPER GASTROINTESTINAL HAEMORRHAGE [None]
